FAERS Safety Report 14634958 (Version 1)
Quarter: 2018Q1

REPORT INFORMATION
  Report Type: Spontaneous
  Country: US (occurrence: US)
  Receive Date: 20180314
  Receipt Date: 20180314
  Transmission Date: 20180509
  Serious: No
  Sender: FDA-Public Use
  Company Number: US-PFIZER INC-2018102997

PATIENT
  Age: 70 Year
  Sex: Male
  Weight: 82 kg

DRUGS (14)
  1. CALCIUM VITAMIN D3 [Concomitant]
     Indication: IMMUNE SYSTEM DISORDER
     Dosage: 2000 IU, DAILY
     Route: 048
  2. XELJANZ XR [Suspect]
     Active Substance: TOFACITINIB CITRATE
     Indication: RHEUMATOID ARTHRITIS
     Dosage: 11 MG, 1X/DAY (1 TABLET TAKEN BY MOUTH ONCE A DAY)
     Route: 048
     Dates: start: 20180130, end: 20180228
  3. CYMBALTA [Concomitant]
     Active Substance: DULOXETINE HYDROCHLORIDE
     Indication: RHEUMATOID ARTHRITIS
  4. CYMBALTA [Concomitant]
     Active Substance: DULOXETINE HYDROCHLORIDE
     Indication: MUSCULOSKELETAL STIFFNESS
  5. CALCIUM VITAMIN D3 [Concomitant]
     Indication: BONE DISORDER
  6. FOLIC ACID. [Concomitant]
     Active Substance: FOLIC ACID
     Indication: RHEUMATOID ARTHRITIS
     Dosage: 1 MG, DAILY (1 TABLET TAKEN BY MOUTH DAILY)
     Route: 048
  7. BENAZEPRIL [Concomitant]
     Active Substance: BENAZEPRIL HYDROCHLORIDE
     Indication: HYPERTENSION
     Dosage: 20 MG, DAILY (2 TABLETS TAKEN BY MOUTH DAILY)
     Route: 048
     Dates: start: 2016
  8. COQ 10 [Concomitant]
     Active Substance: UBIDECARENONE
     Indication: CARDIAC DISORDER
     Dosage: 200 MG, 1X/DAY (1 GEL CAPSULE TAKEN BY MOUTH ONCE A DAY)
     Route: 048
  9. METOPROLOL. [Concomitant]
     Active Substance: METOPROLOL
     Indication: CORONARY ARTERY DISEASE
     Dosage: 25 MG, 1X/DAY (25MG PILL-1 PILL TAKEN BY MOUTH ONCE A DAY)
     Route: 048
     Dates: start: 2016
  10. ALPRAZOLAM. [Concomitant]
     Active Substance: ALPRAZOLAM
     Indication: ANXIETY
     Dosage: 0.5 MG, 2X/DAY (1 TABLET TAKEN BY MOUTH TWICE A DAY)
     Route: 048
  11. ASPIRIN. [Concomitant]
     Active Substance: ASPIRIN
     Indication: CARDIAC DISORDER
     Dosage: 81 MG, 1X/DAY
     Route: 048
     Dates: start: 2016
  12. METHOTREXATE. [Concomitant]
     Active Substance: METHOTREXATE
     Indication: RHEUMATOID ARTHRITIS
     Dosage: 20 MG, WEEKLY (8 TABLETS TAKEN BY MOUTH ALL IN ONE DAY EVERY WEEK)
     Route: 048
  13. CYMBALTA [Concomitant]
     Active Substance: DULOXETINE HYDROCHLORIDE
     Indication: ARTHRALGIA
     Dosage: 90 MG, DAILY (60MG CAPSULES AND 30MG CAPSULES TAKEN TOGETHER FOR TOTAL DOSAGE OF 90MG TAKEN DAILY)
     Route: 048
  14. CYMBALTA [Concomitant]
     Active Substance: DULOXETINE HYDROCHLORIDE
     Indication: DEPRESSION

REACTIONS (3)
  - Bronchitis [Recovering/Resolving]
  - Sinusitis [Recovering/Resolving]
  - Intentional product misuse [Unknown]

NARRATIVE: CASE EVENT DATE: 201802
